FAERS Safety Report 10014589 (Version 1)
Quarter: 2014Q1

REPORT INFORMATION
  Report Type: Report from Study
  Country: AU (occurrence: AU)
  Receive Date: 20140317
  Receipt Date: 20140317
  Transmission Date: 20141002
  Serious: Yes (Congenital Anomaly)
  Sender: FDA-Public Use
  Company Number: AU-UCBSA-114512

PATIENT
  Sex: Male
  Weight: 2.93 kg

DRUGS (6)
  1. KEPPRA [Suspect]
     Indication: EPILEPSY
     Dosage: 3000 MG
     Route: 064
  2. TOPIRAMATE [Suspect]
     Indication: EPILEPSY
     Dosage: 200 MG
     Dates: start: 20120329
  3. FOLIC ACID [Concomitant]
     Indication: SUPPLEMENTATION THERAPY
     Dosage: 5 MG
     Route: 064
     Dates: start: 20120329
  4. BRICANYL [Concomitant]
     Indication: ASTHMA
     Route: 064
     Dates: start: 201009, end: 20110614
  5. ELEVIT [Concomitant]
     Indication: SUPPLEMENTATION THERAPY
     Route: 064
     Dates: start: 201009, end: 20110614
  6. SIMICORT [Concomitant]
     Indication: ASTHMA
     Route: 064
     Dates: start: 201009, end: 20110614

REACTIONS (2)
  - Hypospadias [Unknown]
  - Foetal exposure during pregnancy [Recovered/Resolved]
